FAERS Safety Report 4630754-0 (Version None)
Quarter: 2005Q2

REPORT INFORMATION
  Report Type: 
  Country: None (occurrence: None)
  Receive Date: 20050408
  Receipt Date: 20050329
  Transmission Date: 20051028
  Serious: Yes (Other)
  Sender: FDA-Public Use
  Company Number: US-ROCHE-399988

PATIENT
  Age: 61 Year
  Sex: Male
  Weight: 99.8 kg

DRUGS (10)
  1. KLONOPIN [Suspect]
     Indication: DEPRESSION
     Dosage: TAKEN EVERY NIGHT. STARTED PRIOR TO 15 NOVEMBER 2004.
     Route: 048
  2. ALLOPURINOL [Interacting]
     Indication: GOUT
     Dosage: TAKEN AT BEDTIME. STARTED  PRIOR TO 15 NOVEMBER 2004 AND REPORTED AS 'LONG-TERM DOSING'.
     Route: 048
  3. INTRON A [Interacting]
     Indication: MALIGNANT MELANOMA STAGE III
     Route: 042
     Dates: start: 20041115, end: 20041221
  4. WELLBUTRIN [Interacting]
     Indication: DEPRESSION
     Route: 048
     Dates: start: 20041116
  5. TRAZODONE HCL [Interacting]
     Indication: DEPRESSION
     Dosage: TAKEN EVERY NIGHT. STARTED PRIOR TO 15 NOVEMBER 2004.
     Route: 048
  6. ZOCOR [Interacting]
     Dosage: STARTED PRIOR TO 15 NOVEMBER 2004 AND REPORTED TO BE 'LONG TERM DOSING'.
     Route: 048
  7. REMERON [Interacting]
     Indication: DEPRESSION
     Dosage: TAKEN AT NIGHT. STARTED PRIOR TO 15 NOVEMBER 2004 AND REPORTED TO BE 'LONG-TERM DOSING'.
     Route: 048
  8. MULTIVITAMIN NOS [Interacting]
     Indication: DRUG USE FOR UNKNOWN INDICATION
     Dosage: STARTED PRIOR TO 15 NOVEMBER 2004 AND REPORTED AS 'LONG-TERM DOSING'.
     Route: 048
  9. GLUCOSAMINE [Interacting]
     Indication: DRUG USE FOR UNKNOWN INDICATION
     Dosage: STARTED PRIOR TO 15 NOVEMBER 2004 AND REPORTED AS 'LONG-TERM DOSING'.
     Route: 048
  10. COMPAZINE [Interacting]
     Indication: NAUSEA
     Route: 048
     Dates: start: 20041115

REACTIONS (7)
  - ASTHENIA [None]
  - CONFUSIONAL STATE [None]
  - DECREASED APPETITE [None]
  - DEHYDRATION [None]
  - DRUG INTERACTION [None]
  - LETHARGY [None]
  - NAUSEA [None]
